FAERS Safety Report 4334272-9 (Version None)
Quarter: 2004Q1

REPORT INFORMATION
  Report Type: 
  Country: None (occurrence: None)
  Receive Date: 20040329
  Receipt Date: 20040102
  Transmission Date: 20041129
  Serious: No
  Sender: FDA-Public Use
  Company Number: 03P-163-0222957-00

PATIENT
  Age: 59 Year
  Sex: Female
  Weight: 86.1834 kg

DRUGS (13)
  1. HUMIRA [Suspect]
     Indication: RHEUMATOID ARTHRITIS
     Dosage: 40 MG, 1 IN 2 WK, SUBCUTANEOUS
     Route: 058
     Dates: start: 20030625
  2. GABAPENTIN [Concomitant]
  3. TRAMADOL HCL [Concomitant]
  4. VICODIN [Concomitant]
  5. SIMVASTATIN [Concomitant]
  6. NATALOL [Concomitant]
  7. CLONAZEPAM [Concomitant]
  8. OMEPRAZOLE [Concomitant]
  9. TAMOXIFEN CITRATE [Concomitant]
  10. FLUOXETINE HCL [Concomitant]
  11. PREDNISONE [Concomitant]
  12. FOLIC ACID [Concomitant]
  13. METHOTREXATE [Concomitant]

REACTIONS (3)
  - INJECTION SITE BURNING [None]
  - INJECTION SITE PAIN [None]
  - INJECTION SITE STINGING [None]
